FAERS Safety Report 24274685 (Version 1)
Quarter: 2024Q3

REPORT INFORMATION
  Report Type: Spontaneous
  Country: CN (occurrence: CN)
  Receive Date: 20240902
  Receipt Date: 20240902
  Transmission Date: 20241017
  Serious: Yes (Hospitalization)
  Sender: NOVARTIS
  Company Number: CN-002147023-NVSC2024CN176352

PATIENT
  Age: 38 Year
  Sex: Female
  Weight: 72.5 kg

DRUGS (1)
  1. TEGRETOL [Suspect]
     Active Substance: CARBAMAZEPINE
     Indication: Trigeminal neuralgia
     Dosage: 0.200 G, BID
     Route: 048
     Dates: start: 20240229, end: 20240325

REACTIONS (8)
  - Drug eruption [Recovering/Resolving]
  - Macule [Recovered/Resolved]
  - Face oedema [Unknown]
  - Pruritus [Recovering/Resolving]
  - Pyrexia [Unknown]
  - Nausea [Unknown]
  - Vomiting [Unknown]
  - Heart rate increased [Unknown]

NARRATIVE: CASE EVENT DATE: 20240324
